FAERS Safety Report 10755008 (Version 1)
Quarter: 2015Q1

REPORT INFORMATION
  Report Type: Spontaneous
  Country: BR (occurrence: BR)
  Receive Date: 20150202
  Receipt Date: 20150202
  Transmission Date: 20150721
  Serious: Yes (Disabling)
  Sender: FDA-Public Use
  Company Number: BR-ABBVIE-13P-020-1158707-00

PATIENT
  Age: 50 Year
  Sex: Female
  Weight: 63 kg

DRUGS (4)
  1. TECNOMET [Concomitant]
     Active Substance: METHOTREXATE
     Indication: RHEUMATOID ARTHRITIS
     Route: 048
  2. HUMIRA [Suspect]
     Active Substance: ADALIMUMAB
     Indication: RHEUMATOID ARTHRITIS
     Route: 058
     Dates: start: 20111128, end: 2013
  3. ENDOFOLIN [Concomitant]
     Active Substance: FOLIC ACID
     Indication: RHEUMATOID ARTHRITIS
     Route: 048
     Dates: start: 2010
  4. FOLIC ACID. [Concomitant]
     Active Substance: FOLIC ACID
     Indication: RHEUMATOID ARTHRITIS
     Route: 048

REACTIONS (6)
  - Hypoaesthesia [Not Recovered/Not Resolved]
  - Hypoaesthesia [Recovering/Resolving]
  - Pain in extremity [Unknown]
  - Dry skin [Unknown]
  - Weight decreased [Recovered/Resolved]
  - Hypoaesthesia [Recovered/Resolved]

NARRATIVE: CASE EVENT DATE: 201212
